FAERS Safety Report 8993067 (Version 2)
Quarter: 2013Q1

REPORT INFORMATION
  Report Type: Spontaneous
  Country: CA (occurrence: CA)
  Receive Date: 20130102
  Receipt Date: 20130114
  Transmission Date: 20140127
  Serious: Yes (Other)
  Sender: FDA-Public Use
  Company Number: CA-ROCHE-1174655

PATIENT
  Age: 80 Year
  Sex: Female

DRUGS (1)
  1. TAMIFLU [Suspect]
     Indication: PRODUCT USED FOR UNKNOWN INDICATION
     Route: 065
     Dates: start: 20121202, end: 20121211

REACTIONS (9)
  - Coordination abnormal [Recovered/Resolved]
  - Confusional state [Unknown]
  - Disorientation [Unknown]
  - Hallucination [Unknown]
  - Physical disability [Recovering/Resolving]
  - Mental impairment [Recovering/Resolving]
  - Incoherent [Recovering/Resolving]
  - Diarrhoea [Recovering/Resolving]
  - Insomnia [Not Recovered/Not Resolved]
